FAERS Safety Report 14150012 (Version 3)
Quarter: 2017Q4

REPORT INFORMATION
  Report Type: Spontaneous
  Country: JP (occurrence: JP)
  Receive Date: 20171101
  Receipt Date: 20171214
  Transmission Date: 20180321
  Serious: Yes (Life-Threatening, Hospitalization, Other)
  Sender: FDA-Public Use
  Company Number: JP-VALIDUS PHARMACEUTICALS LLC-JP-2017VAL001495

PATIENT
  Age: 18 Month
  Sex: Female

DRUGS (2)
  1. CLAFORAN [Suspect]
     Active Substance: CEFOTAXIME SODIUM
     Indication: PROPHYLAXIS
     Dosage: UNK
     Route: 065
  2. FAMOTIDINE. [Suspect]
     Active Substance: FAMOTIDINE
     Indication: PRODUCT USED FOR UNKNOWN INDICATION
     Dosage: UNK
     Route: 065
     Dates: start: 20170501, end: 20170503

REACTIONS (14)
  - C-reactive protein increased [Recovering/Resolving]
  - Cytokine storm [Recovering/Resolving]
  - Urine output decreased [Recovering/Resolving]
  - Bacterial test positive [Recovering/Resolving]
  - Septic shock [Recovering/Resolving]
  - Clostridium difficile colitis [Recovering/Resolving]
  - Gastrointestinal oedema [Recovering/Resolving]
  - Circulatory collapse [Recovering/Resolving]
  - Clostridium test positive [Recovering/Resolving]
  - Procalcitonin increased [Recovering/Resolving]
  - Acute respiratory distress syndrome [Recovering/Resolving]
  - Diarrhoea [Recovering/Resolving]
  - Gastrointestinal wall thickening [Recovering/Resolving]
  - Myocarditis infectious [Recovering/Resolving]
